FAERS Safety Report 5281357-9 (Version None)
Quarter: 2007Q1

REPORT INFORMATION
  Report Type: 
  Country: None (occurrence: None)
  Receive Date: 20070323
  Receipt Date: 20070323
  Transmission Date: 20070707
  Serious: Yes (Other)
  Sender: FDA-Public Use
  Company Number: None

PATIENT
  Sex: Female

DRUGS (1)
  1. COPAXONE [Suspect]
     Indication: MULTIPLE SCLEROSIS
     Dosage: 20MG -PFS- DAILY SQ
     Route: 058
     Dates: start: 20010101, end: 20070101

REACTIONS (2)
  - HYPERSENSITIVITY [None]
  - URTICARIA [None]
